FAERS Safety Report 22779593 (Version 3)
Quarter: 2024Q1

REPORT INFORMATION
  Report Type: Report from Study
  Country: US (occurrence: US)
  Receive Date: 20230802
  Receipt Date: 20240131
  Transmission Date: 20240409
  Serious: Yes (Hospitalization, Other)
  Sender: FDA-Public Use
  Company Number: US-ABBVIE-5350195

PATIENT
  Age: 70 Year
  Sex: Male
  Weight: 88.904 kg

DRUGS (6)
  1. RINVOQ [Suspect]
     Active Substance: UPADACITINIB
     Indication: Ankylosing spondylitis
     Dosage: FORM STRENGTH: 15 MILLIGRAM
     Route: 048
     Dates: start: 202212, end: 20230729
  2. VOLTAREN [Concomitant]
     Active Substance: DICLOFENAC SODIUM
     Indication: Back pain
  3. TERAZOSIN [Concomitant]
     Active Substance: TERAZOSIN HYDROCHLORIDE
     Indication: Hypertension
     Dosage: TIME INTERVAL: 0.33333333 DAYS: FORM STRENGTH: 5 MG
  4. ACETAMINOPHEN [Concomitant]
     Active Substance: ACETAMINOPHEN
     Indication: Back pain
  5. ROSUVASTATIN [Concomitant]
     Active Substance: ROSUVASTATIN
     Indication: Blood cholesterol increased
  6. TYLENOL [Concomitant]
     Active Substance: ACETAMINOPHEN
     Indication: Pain
     Dosage: FREQUENCY TEXT: AS NEEDED

REACTIONS (14)
  - Pulmonary embolism [Not Recovered/Not Resolved]
  - Supraventricular extrasystoles [Recovering/Resolving]
  - Protein total increased [Unknown]
  - Aortic arteriosclerosis [Recovering/Resolving]
  - Lung infiltration [Recovering/Resolving]
  - Chest discomfort [Recovered/Resolved]
  - Fatigue [Recovered/Resolved]
  - Fibrin D dimer increased [Recovering/Resolving]
  - Sinus bradycardia [Recovering/Resolving]
  - Arteriosclerosis coronary artery [Recovering/Resolving]
  - Blood pressure increased [Recovered/Resolved]
  - Renal cyst [Unknown]
  - Transvalvular pressure gradient abnormal [Not Recovered/Not Resolved]
  - Pulmonary thrombosis [Recovering/Resolving]

NARRATIVE: CASE EVENT DATE: 20230728
